FAERS Safety Report 16186655 (Version 4)
Quarter: 2021Q1

REPORT INFORMATION
  Report Type: Spontaneous
  Country: FI (occurrence: FI)
  Receive Date: 20190411
  Receipt Date: 20210107
  Transmission Date: 20210419
  Serious: Yes (Other)
  Sender: FDA-Public Use
  Company Number: FI-GLAXOSMITHKLINE-FI2019GSK062958

PATIENT
  Age: 35 Year
  Sex: Male

DRUGS (12)
  1. NEUROMAX FORTE [Concomitant]
     Indication: VITAMIN B1
     Dosage: UNK UNK, 1D
  2. VOXRA [Suspect]
     Active Substance: BUPROPION HYDROCHLORIDE
     Indication: SMOKING CESSATION THERAPY
  3. PROPRAL [Concomitant]
     Indication: TACHYCARDIA
     Dosage: 10 DF, UNK
     Route: 048
  4. VOXRA [Suspect]
     Active Substance: BUPROPION HYDROCHLORIDE
     Indication: DEPRESSION
     Dosage: 150 MG
     Route: 048
     Dates: start: 2015
  5. RIVATRIL [Concomitant]
     Active Substance: CLONAZEPAM
     Indication: ANXIETY
     Dosage: 1 MG, BID
     Dates: start: 2015
  6. SILDENAFIL. [Concomitant]
     Active Substance: SILDENAFIL
     Indication: ERECTILE DYSFUNCTION
     Dosage: 100 MG, PRN
     Route: 048
     Dates: start: 20170803
  7. XANOR [Concomitant]
     Active Substance: ALPRAZOLAM
     Indication: PRODUCT USED FOR UNKNOWN INDICATION
     Dosage: UNK
  8. LYRICA [Concomitant]
     Active Substance: PREGABALIN
     Indication: PRODUCT USED FOR UNKNOWN INDICATION
     Dosage: UNK
  9. PANTOPRAZOLE [Concomitant]
     Active Substance: PANTOPRAZOLE
     Indication: DYSPEPSIA
     Dosage: 40 MG, 1D
  10. MEMANTINE. [Concomitant]
     Active Substance: MEMANTINE
     Indication: BRAIN INJURY
     Dosage: 10 MG, 1D
  11. METHYLPHENIDATE. [Concomitant]
     Active Substance: METHYLPHENIDATE
     Indication: ATTENTION DEFICIT HYPERACTIVITY DISORDER
     Dosage: 36 MG, 1D
  12. NICOTINELL [Concomitant]
     Active Substance: NICOTINE
     Indication: SMOKING CESSATION THERAPY
     Dosage: UNK
     Route: 062
     Dates: start: 2015

REACTIONS (27)
  - Body temperature increased [Not Recovered/Not Resolved]
  - Product use in unapproved indication [Unknown]
  - Drug abuse [Unknown]
  - Psychotic disorder [Not Recovered/Not Resolved]
  - Anxiety [Not Recovered/Not Resolved]
  - Depression [Not Recovered/Not Resolved]
  - Drug ineffective [Unknown]
  - Petit mal epilepsy [Unknown]
  - Aggression [Unknown]
  - Hypoaesthesia [Not Recovered/Not Resolved]
  - Product use issue [Unknown]
  - Brain injury [Not Recovered/Not Resolved]
  - Near death experience [Unknown]
  - Ulcer [Unknown]
  - Pyrexia [Recovered/Resolved]
  - Derealisation [Recovered/Resolved]
  - Seizure [Not Recovered/Not Resolved]
  - Suicidal ideation [Recovered/Resolved]
  - Intentional product misuse [Unknown]
  - Incorrect route of product administration [Unknown]
  - Hallucination [Recovered/Resolved]
  - Cognitive disorder [Recovered/Resolved]
  - Mental impairment [Unknown]
  - Delusion [Unknown]
  - Panic attack [Recovered/Resolved]
  - Tissue injury [Unknown]
  - Cardiovascular disorder [Not Recovered/Not Resolved]

NARRATIVE: CASE EVENT DATE: 2015
